FAERS Safety Report 25172864 (Version 1)
Quarter: 2025Q2

REPORT INFORMATION
  Report Type: Spontaneous
  Country: US (occurrence: None)
  Receive Date: 20250408
  Receipt Date: 20250408
  Transmission Date: 20250717
  Serious: Yes (Hospitalization)
  Sender: FDA-CTU
  Company Number: None

PATIENT
  Age: 21 Year
  Sex: Male
  Weight: 89.4 kg

DRUGS (4)
  1. BLEOMYCIN [Suspect]
     Active Substance: BLEOMYCIN SULFATE
  2. CISPLATIN [Suspect]
     Active Substance: CISPLATIN
  3. ETOPOSIDE [Suspect]
     Active Substance: ETOPOSIDE
  4. FILGRASTIM [Suspect]
     Active Substance: FILGRASTIM

REACTIONS (7)
  - Hypoxia [None]
  - Respiratory rate increased [None]
  - Nausea [None]
  - Skin discolouration [None]
  - Lung opacity [None]
  - Pleural effusion [None]
  - Pneumonitis [None]

NARRATIVE: CASE EVENT DATE: 20250315
